FAERS Safety Report 4816740-6 (Version None)
Quarter: 2005Q4

REPORT INFORMATION
  Report Type: 
  Country: None (occurrence: None)
  Receive Date: 20051101
  Receipt Date: 20050311
  Transmission Date: 20060501
  Serious: No
  Sender: FDA-Public Use
  Company Number: 2005036589

PATIENT
  Age: 5 Month
  Sex: Female

DRUGS (2)
  1. AMOXICILLIN [Suspect]
     Indication: NASOPHARYNGITIS
     Dosage: 1TSP FOUR TIMES PER DAY
     Route: 048
     Dates: start: 20050224, end: 20050225
  2. PEDIACARE INFANTS DECONGESTANT [Suspect]
     Indication: NASOPHARYNGITIS
     Dosage: .4ML FOUR TIMES PER DAY
     Route: 048
     Dates: start: 20050224, end: 20050225

REACTIONS (2)
  - ABNORMAL BEHAVIOUR [None]
  - VOMITING [None]
